FAERS Safety Report 6688529-7 (Version None)
Quarter: 2010Q2

REPORT INFORMATION
  Report Type: 
  Country: None (occurrence: None)
  Receive Date: 20100414
  Receipt Date: 20100330
  Transmission Date: 20101027
  Serious: Yes (Hospitalization)
  Sender: FDA-Public Use
  Company Number: B0646430A

PATIENT
  Sex: 0

DRUGS (5)
  1. PAROXETINE HCL [Suspect]
     Dosage: ORAL
     Route: 048
  2. PROPRANOLOL [Suspect]
     Dosage: ORAL
     Route: 048
  3. ACETAMINOPHEN [Suspect]
     Dosage: ORAL
     Route: 048
  4. MEPROBAMATE [Suspect]
     Dosage: ORAL
     Route: 048
  5. DEXTROPROPOXYPHENE (DEXTROPROPOXYPHENE) (FORMULATION UNKNOWN) [Suspect]
     Dosage: ORAL
     Route: 048

REACTIONS (7)
  - BLOOD BICARBONATE DECREASED [None]
  - BLOOD LACTIC ACID DECREASED [None]
  - BLOOD PRESSURE DECREASED [None]
  - CARDIOVASCULAR DISORDER [None]
  - COMA SCALE ABNORMAL [None]
  - DRUG TOXICITY [None]
  - VENTRICULAR HYPOKINESIA [None]
